FAERS Safety Report 4649363-2 (Version None)
Quarter: 2005Q2

REPORT INFORMATION
  Report Type: 
  Country: None (occurrence: None)
  Receive Date: 20050428
  Receipt Date: 20050428
  Transmission Date: 20051028
  Serious: Yes (Other)
  Sender: FDA-Public Use
  Company Number: None

PATIENT
  Sex: Male
  Weight: 75 kg

DRUGS (8)
  1. STEM CELL INFUSION TISSUE [Suspect]
     Dates: start: 20040608
  2. ALLOPURINOL [Concomitant]
  3. CYCLOPHOSPHAMIDE [Concomitant]
  4. FLUDARABINE PHOSPHATE [Concomitant]
  5. NEUPOGEN [Concomitant]
  6. FILGRASTIM [Concomitant]
  7. METHOTREXATE [Concomitant]
  8. TACROLIMUS [Concomitant]

REACTIONS (7)
  - ABDOMINAL DISTENSION [None]
  - ASPERGILLOSIS [None]
  - CARDIAC TAMPONADE [None]
  - CHEST DISCOMFORT [None]
  - DYSPNOEA EXERTIONAL [None]
  - PERICARDIAL EFFUSION [None]
  - PNEUMOCYSTIS JIROVECI PNEUMONIA [None]
